FAERS Safety Report 9834873 (Version 1)
Quarter: 2014Q1

REPORT INFORMATION
  Report Type: Spontaneous
  Country: US (occurrence: US)
  Receive Date: 20140122
  Receipt Date: 20140122
  Transmission Date: 20141002
  Serious: No
  Sender: FDA-Public Use
  Company Number: US-BAUSCH-BL-2013-004330

PATIENT
  Age: 84 Year
  Sex: Female
  Weight: 56.3 kg

DRUGS (8)
  1. ALAWAY (KETOTIFEN FUMARATE OPHTHALMIC SOLUTION) [Suspect]
     Indication: EYE PRURITUS
     Dosage: 1 DROP LEFT EYE; ONCE DAILY; OPHTHALMIC
     Route: 047
     Dates: start: 20130717, end: 20130718
  2. ALAWAY (KETOTIFEN FUMARATE OPHTHALMIC SOLUTION) [Suspect]
     Dosage: 1 DROP RIGHT EYE; ONCE DAILY; OPHTHALMIC
     Route: 047
     Dates: start: 20130717, end: 20130718
  3. SOTALOL [Concomitant]
     Indication: HEART RATE IRREGULAR
  4. COUMADIN [Concomitant]
  5. ASPIRIN [Concomitant]
  6. MULTIVITAMIN [Concomitant]
  7. FISH OIL [Concomitant]
  8. ZANTAC [Concomitant]
     Indication: DYSPEPSIA

REACTIONS (1)
  - Drug ineffective [Recovered/Resolved]
